FAERS Safety Report 17371550 (Version 1)
Quarter: 2020Q1

REPORT INFORMATION
  Report Type: Spontaneous
  Country: US (occurrence: US)
  Receive Date: 20200205
  Receipt Date: 20200205
  Transmission Date: 20200409
  Serious: No
  Sender: FDA-Public Use
  Company Number: US-JNJFOC-20200128121

PATIENT
  Age: 62 Year
  Sex: Female
  Weight: 88.53 kg

DRUGS (1)
  1. WOMENS ROGAINE UNSCENTED [Suspect]
     Active Substance: MINOXIDIL
     Indication: ALOPECIA
     Dosage: 1 CAP, ONCE A DAY, THE PATIENT LAST USED THE PRODUCT ON 15-JAN-2020.
     Route: 061
     Dates: start: 20200112

REACTIONS (4)
  - Overdose [Unknown]
  - Contraindicated product administered [Unknown]
  - Off label use [Unknown]
  - Rash macular [Recovering/Resolving]

NARRATIVE: CASE EVENT DATE: 20200112
